FAERS Safety Report 4646441-9 (Version None)
Quarter: 2005Q2

REPORT INFORMATION
  Report Type: 
  Country: None (occurrence: None)
  Receive Date: 20050427
  Receipt Date: 20040120
  Transmission Date: 20051028
  Serious: No
  Sender: FDA-Public Use
  Company Number: US-GLAXOSMITHKLINE-A0494254A

PATIENT
  Sex: Female

DRUGS (2)
  1. FLOVENT [Suspect]
     Indication: ILL-DEFINED DISORDER
     Dosage: 220MCG TWICE PER DAY
     Route: 055
     Dates: start: 20030901
  2. ADVAIR DISKUS 100/50 [Suspect]
     Indication: ASTHMA
     Dosage: 1PUFF TWICE PER DAY
     Route: 055

REACTIONS (2)
  - DYSPHONIA [None]
  - MOUTH ULCERATION [None]
